FAERS Safety Report 14161961 (Version 3)
Quarter: 2018Q1

REPORT INFORMATION
  Report Type: Report from Study
  Country: GB (occurrence: GB)
  Receive Date: 20171106
  Receipt Date: 20180116
  Transmission Date: 20180508
  Serious: Yes (Other)
  Sender: FDA-Public Use
  Company Number: US-ASTRAZENECA-2017SF12438

PATIENT
  Age: 76 Year
  Sex: Male

DRUGS (2)
  1. AZD4547 [Suspect]
     Active Substance: INVESTIGATIONAL PRODUCT
     Indication: BLADDER TRANSITIONAL CELL CARCINOMA
     Dosage: 80 MG TWO TIMES A DAY
     Route: 048
     Dates: start: 20171009, end: 20171026
  2. MEDI4736 [Suspect]
     Active Substance: DURVALUMAB
     Indication: BLADDER TRANSITIONAL CELL CARCINOMA
     Dosage: 1500 MG, CYCLICAL
     Route: 042
     Dates: start: 20171009, end: 20171009

REACTIONS (1)
  - Neovascular age-related macular degeneration [Not Recovered/Not Resolved]

NARRATIVE: CASE EVENT DATE: 20171026
